FAERS Safety Report 9775974 (Version 2)
Quarter: 2013Q4

REPORT INFORMATION
  Report Type: Spontaneous
  Country: US (occurrence: US)
  Receive Date: 20131220
  Receipt Date: 20131220
  Transmission Date: 20140711
  Serious: No
  Sender: FDA-Public Use
  Company Number: -SAAVPROD-THYR-1000822

PATIENT
  Age: 38 Year
  Sex: Female

DRUGS (3)
  1. THYROTROPIN ALFA [Suspect]
     Indication: DIAGNOSTIC PROCEDURE
     Dosage: 0.9 MG, ONCE(1 DOSE)
     Route: 065
     Dates: start: 20121213, end: 20121213
  2. TOPIRAMATE [Concomitant]
     Indication: MIGRAINE
     Dosage: 100 MG, QD
     Route: 065
  3. LEVOTHYROXINE SODIUM [Concomitant]
     Indication: HYPOTHYROIDISM
     Dosage: 200 MCG, QD
     Route: 065
     Dates: start: 2009

REACTIONS (1)
  - Exposure during pregnancy [Unknown]
